FAERS Safety Report 16048142 (Version 4)
Quarter: 2019Q2

REPORT INFORMATION
  Report Type: Report from Study
  Country: CA (occurrence: CA)
  Receive Date: 20190307
  Receipt Date: 20190614
  Transmission Date: 20190711
  Serious: Yes (Hospitalization, Other)
  Sender: FDA-Public Use
  Company Number: CA-HBP-2019CA018414

PATIENT
  Age: 68 Year
  Sex: Female
  Weight: 72 kg

DRUGS (26)
  1. VITAMIN B12 [Concomitant]
     Active Substance: CYANOCOBALAMIN
     Dosage: 1000 MILLIGRAM ONCE DAILY
     Route: 048
  2. LORAZEPAM. [Concomitant]
     Active Substance: LORAZEPAM
     Dosage: 1 MILLIGRAM EVERY 6 HOURS AS NEEDED
  3. LORAZEPAM. [Concomitant]
     Active Substance: LORAZEPAM
     Dosage: 1 MILLIGRAM SINGLE DOSE
     Route: 048
     Dates: start: 20190215, end: 20190215
  4. MESNA. [Concomitant]
     Active Substance: MESNA
     Dosage: 2300 MILLIGRAM OVER 12 HOURS FOLLOWING IFOSFAMIDE
  5. MAXERAN [Concomitant]
     Active Substance: METOCLOPRAMIDE HYDROCHLORIDE
     Dosage: 10 MILLIGRAM AS NEEDED EVERY 4 HOURS
     Route: 042
     Dates: start: 20190212, end: 20190213
  6. AKYNZEO [Suspect]
     Active Substance: NETUPITANT\PALONOSETRON HYDROCHLORIDE
     Indication: PROPHYLAXIS OF NAUSEA AND VOMITING
     Dosage: 1 DOSAGE FORM, SINGLE
     Route: 048
     Dates: start: 20190211, end: 20190211
  7. QUETIAPINE. [Concomitant]
     Active Substance: QUETIAPINE
     Dosage: 12.5 MILLIGRAM TWICE A DAY
     Route: 048
     Dates: start: 20190214
  8. TYLENOL [Concomitant]
     Active Substance: ACETAMINOPHEN
     Dosage: 1 GRAM EVERY 6 HOURS AS NEEDED
     Route: 048
     Dates: start: 20190212
  9. SENOKOT-S [Concomitant]
     Active Substance: DOCUSATE SODIUM\SENNOSIDES
     Dosage: 1 TABLET TWICE DAILY
     Route: 048
  10. DECADRON [Concomitant]
     Active Substance: DEXAMETHASONE
     Dosage: 12 MILLIGRAM PRIOR TO CHEMO
     Route: 048
  11. MEDROXYPROGESTERONE [Concomitant]
     Active Substance: MEDROXYPROGESTERONE
     Dosage: 2.5 MILLIGRAM ONCE DAILY
     Route: 048
  12. DECADRON [Concomitant]
     Active Substance: DEXAMETHASONE
     Dosage: 8 MILLIGRAM ONCE DAILY DAYS 2-4
     Route: 048
  13. LORAZEPAM. [Concomitant]
     Active Substance: LORAZEPAM
     Dosage: 0.5 MILLIGRAM THREE TIMES DAILY AS NEEDED
     Route: 048
     Dates: start: 20190215
  14. QUETIAPINE. [Concomitant]
     Active Substance: QUETIAPINE
     Dosage: 6.25 MILLIGRAM SINGLE DOSE
     Route: 048
     Dates: start: 20190214, end: 20190214
  15. AMLODIPINE [Concomitant]
     Active Substance: AMLODIPINE BESYLATE
     Dosage: 2.5 MILLIGRAM SINGLE DOSE
     Route: 048
     Dates: start: 20190214
  16. PANTOPRAZOLE [Concomitant]
     Active Substance: PANTOPRAZOLE
     Dosage: 40 MILLIGRAM ONCE DAILY
     Route: 048
     Dates: start: 20190214, end: 20190217
  17. CONJUGATED ESTROGENS [Concomitant]
     Active Substance: ESTROGENS, CONJUGATED
     Dosage: 0.3 MILLIGRAM ONCE DAILY
     Route: 048
  18. MESNA. [Concomitant]
     Active Substance: MESNA
     Dosage: 1100 MILLIGRAM 15 MINUTES PRIOR TO IFOSFAMIDE
  19. ALMAGEL                            /00082501/ [Concomitant]
     Active Substance: ALUMINUM HYDROXIDE\MAGNESIUM HYDROXIDE
     Dosage: 30 MILLIGRAM EVERY 4 HOURS AS NEEDED
     Route: 048
     Dates: start: 20190212
  20. PEG                                /01543001/ [Concomitant]
     Active Substance: PEGINTERFERON ALFA-2B
     Dosage: 17 GRAM AS NEEDED
     Dates: start: 20190212
  21. FRAGMIN [Concomitant]
     Active Substance: DALTEPARIN SODIUM
     Dosage: 5000 UNITS ONCE DAILY
     Route: 058
     Dates: start: 20190215, end: 20190217
  22. STEMETIL                           /00013301/ [Concomitant]
     Active Substance: PROCHLORPERAZINE
     Dosage: EVERY 4 HOURS AS NEEDED
  23. IFOSFAMIDE. [Interacting]
     Active Substance: IFOSFAMIDE
     Indication: BREAST CANCER
     Dosage: 9250 MILLIGRAM OVER 24 HOURS
     Route: 042
     Dates: start: 20190211, end: 20190212
  24. MESNA. [Concomitant]
     Active Substance: MESNA
     Dosage: 5000 MILLIGRAM CONCURRENT WITH IFOSFAMIDE OVER 24 HOURS
  25. LASIX [Concomitant]
     Active Substance: FUROSEMIDE
     Dosage: 20 MILLIGRAM AT HOUR 16 AND 28 OF EACH TREATMENT
  26. NORMAL SALINE [Concomitant]
     Active Substance: SODIUM CHLORIDE
     Dosage: 125 MLS/HOUR
     Dates: start: 20190214, end: 20190214

REACTIONS (3)
  - Hallucination, visual [Recovered/Resolved]
  - Drug interaction [Recovered/Resolved]
  - Hallucination, auditory [Unknown]

NARRATIVE: CASE EVENT DATE: 20190214
